FAERS Safety Report 10510364 (Version 2)
Quarter: 2014Q4

REPORT INFORMATION
  Report Type: Spontaneous
  Country: GB (occurrence: GB)
  Receive Date: 20141010
  Receipt Date: 20141010
  Transmission Date: 20150528
  Serious: Yes (Other)
  Sender: FDA-Public Use
  Company Number: GB-009507513-1303GBR014301

PATIENT
  Age: 18 Year
  Sex: Female

DRUGS (1)
  1. IMPLANON [Suspect]
     Active Substance: ETONOGESTREL
     Indication: CONTRACEPTION
     Dosage: 1 ROD ON 3 YRS (TDD: 92-261 PG/ML IN 1SY YR. TO 156-177 PG/ML PR. LAST YR)
     Route: 059
     Dates: start: 20100412, end: 20130323

REACTIONS (3)
  - Medical device complication [Recovered/Resolved]
  - Incorrect drug administration duration [Unknown]
  - Surgery [Recovered/Resolved]

NARRATIVE: CASE EVENT DATE: 20130312
